FAERS Safety Report 8676574 (Version 2)
Quarter: 2012Q4

REPORT INFORMATION
  Report Type: 
  Country: BR (occurrence: BR)
  Receive Date: 20120722
  Receipt Date: 20121218
  Transmission Date: 20130627
  Serious: Yes (Hospitalization, Other)
  Sender: FDA-Public Use
  Company Number: BR-TEVA-348097ISR

PATIENT
  Sex: Female
  Weight: 65 kg

DRUGS (6)
  1. COPAXONE [Suspect]
     Indication: MULTIPLE SCLEROSIS
     Dosage: 20 Milligram Daily;
     Route: 058
     Dates: start: 20051002, end: 201111
  2. COPAXONE [Suspect]
     Dosage: 20 Milligram Daily;
     Route: 058
     Dates: start: 201111
  3. LIORESAL [Concomitant]
     Route: 065
  4. GABAPENTINE [Concomitant]
     Route: 065
  5. ULTRACET [Concomitant]
     Route: 065
  6. FRONTAL [Concomitant]
     Route: 065

REACTIONS (4)
  - Secondary progressive multiple sclerosis [Not Recovered/Not Resolved]
  - Multiple sclerosis relapse [Recovering/Resolving]
  - Urinary tract infection [Recovered/Resolved]
  - Underdose [Unknown]
